FAERS Safety Report 10606486 (Version 1)
Quarter: 2014Q4

REPORT INFORMATION
  Report Type: Spontaneous
  Country: US (occurrence: None)
  Receive Date: 20141124
  Receipt Date: 20141124
  Transmission Date: 20150529
  Serious: Yes (Disabling)
  Sender: FDA-Public Use
  Company Number: None

PATIENT
  Age: 50 Year
  Sex: Female
  Weight: 79.38 kg

DRUGS (1)
  1. SIMVASTATIN. [Suspect]
     Active Substance: SIMVASTATIN
     Indication: PERIPHERAL ARTERIAL OCCLUSIVE DISEASE
     Dosage: ONCE DAILY

REACTIONS (18)
  - Memory impairment [None]
  - Gait disturbance [None]
  - Activities of daily living impaired [None]
  - Oxygen saturation decreased [None]
  - Quality of life decreased [None]
  - Blood creatine phosphokinase increased [None]
  - Urinary tract infection [None]
  - Muscle spasms [None]
  - Sleep disorder [None]
  - Blood disorder [None]
  - Pain in extremity [None]
  - Asthenia [None]
  - Muscle fatigue [None]
  - Exercise tolerance decreased [None]
  - Renal failure [None]
  - Depression [None]
  - Pain [None]
  - Weight increased [None]
